FAERS Safety Report 11577371 (Version 1)
Quarter: 2015Q3

REPORT INFORMATION
  Report Type: Spontaneous
  Country: US (occurrence: US)
  Receive Date: 20150930
  Receipt Date: 20150930
  Transmission Date: 20151125
  Serious: No
  Sender: FDA-Public Use
  Company Number: US-DRREDDYS-USA/USA/15/0047819

PATIENT
  Sex: Female

DRUGS (2)
  1. AUGMENTIN [Suspect]
     Active Substance: AMOXICILLIN\CLAVULANATE POTASSIUM
     Indication: SINUSITIS
     Route: 065
  2. FLOLAN [Concomitant]
     Active Substance: EPOPROSTENOL SODIUM
     Indication: PULMONARY HYPERTENSION
     Dates: start: 20060609

REACTIONS (1)
  - Adverse event [Unknown]
